FAERS Safety Report 5463317-8 (Version None)
Quarter: 2007Q3

REPORT INFORMATION
  Report Type: 
  Country: None (occurrence: None)
  Receive Date: 20070920
  Receipt Date: 20070913
  Transmission Date: 20080115
  Serious: Yes (Other)
  Sender: FDA-Public Use
  Company Number: PHEH2007US10315

PATIENT
  Age: 69 Year
  Sex: Female

DRUGS (3)
  1. TEKTURNA [Suspect]
     Dosage: 150 MG, UNK
     Route: 048
  2. TEKTURNA [Suspect]
     Dosage: 300 MG, UNK
     Route: 048
     Dates: start: 20070619, end: 20070702
  3. HYDROCHLOROTHIAZIDE [Concomitant]
     Dosage: 50 MG, QD
     Route: 048

REACTIONS (9)
  - BLOOD PRESSURE DIASTOLIC DECREASED [None]
  - DERMATITIS ALLERGIC [None]
  - DIARRHOEA [None]
  - FATIGUE [None]
  - HYPERSOMNIA [None]
  - NAUSEA [None]
  - RASH [None]
  - VOMITING [None]
  - WEIGHT DECREASED [None]
